FAERS Safety Report 7420743-5 (Version None)
Quarter: 2011Q2

REPORT INFORMATION
  Report Type: 
  Country: None (occurrence: None)
  Receive Date: 20110418
  Receipt Date: 20110412
  Transmission Date: 20111010
  Serious: Yes (Hospitalization)
  Sender: FDA-Public Use
  Company Number: US-BRISTOL-MYERS SQUIBB COMPANY-15410459

PATIENT
  Age: 63 Year
  Sex: Male

DRUGS (12)
  1. FELODIPINE [Concomitant]
  2. ONGLYZA [Suspect]
     Indication: DIABETES MELLITUS
     Dosage: TEMP DISCONTINUED ON 18NOV2010
     Dates: start: 20101014
  3. PROZAC [Concomitant]
     Indication: DEPRESSION
  4. METFORMIN [Concomitant]
  5. METOPROLOL [Concomitant]
  6. ENALAPRIL MALEATE [Suspect]
  7. FLOVENT [Concomitant]
     Dosage: METERED-DOSE INHALER
  8. SALMETEROL [Concomitant]
  9. TRICOR [Concomitant]
  10. CRESTOR [Suspect]
  11. ASPIRIN [Concomitant]
  12. GLIMEPIRIDE [Concomitant]

REACTIONS (1)
  - PANCREATITIS [None]
